FAERS Safety Report 6913030-2 (Version None)
Quarter: 2010Q3

REPORT INFORMATION
  Report Type: 
  Country: None (occurrence: None)
  Receive Date: 20100806
  Receipt Date: 20090616
  Transmission Date: 20110219
  Serious: No
  Sender: FDA-Public Use
  Company Number: US-PFIZER INC-2009206082

PATIENT
  Sex: Male
  Weight: 54.4 kg

DRUGS (7)
  1. DETROL LA [Suspect]
     Indication: URINARY INCONTINENCE
     Dosage: 4 MG, 1X/DAY
     Dates: start: 20040101
  2. SIL-NORBORAL [Concomitant]
     Indication: DIABETES MELLITUS
     Dosage: UNK
  3. ATENOLOL [Concomitant]
     Dosage: UNK
  4. LIPITOR [Concomitant]
     Indication: BLOOD CHOLESTEROL ABNORMAL
     Dosage: UNK
  5. ISOSORBIDE [Concomitant]
     Dosage: UNK
  6. WARFARIN [Concomitant]
     Dosage: UNK
  7. FUROSEMIDE [Concomitant]

REACTIONS (1)
  - DRUG INEFFECTIVE [None]
